FAERS Safety Report 8554368-5 (Version None)
Quarter: 2012Q3

REPORT INFORMATION
  Report Type: 
  Country: None (occurrence: None)
  Receive Date: 20120731
  Receipt Date: 20120723
  Transmission Date: 20120928
  Serious: Yes (Hospitalization, Other)
  Sender: FDA-Public Use
  Company Number: US-009507513-1207USA010468

PATIENT

DRUGS (3)
  1. ROCEPHIN [Suspect]
     Dosage: 1 G, UNK
     Route: 030
  2. PANTOPRAZOLE SODIUM [Suspect]
     Dosage: 20 MG, QD
     Route: 048
  3. ZOCOR [Suspect]
     Dosage: 20 MG, UNK
     Route: 048

REACTIONS (6)
  - GAMMA-GLUTAMYLTRANSFERASE INCREASED [None]
  - ASTHENIA [None]
  - BLOOD LACTATE DEHYDROGENASE INCREASED [None]
  - PYREXIA [None]
  - ALANINE AMINOTRANSFERASE INCREASED [None]
  - ASPARTATE AMINOTRANSFERASE INCREASED [None]
